FAERS Safety Report 9428792 (Version 1)
Quarter: 2013Q3

REPORT INFORMATION
  Report Type: Report from Study
  Country: US (occurrence: US)
  Receive Date: 20130730
  Receipt Date: 20130730
  Transmission Date: 20140515
  Serious: No
  Sender: FDA-Public Use
  Company Number: US-ABBOTT-12P-163-1007446-00

PATIENT
  Sex: Male
  Weight: 88.98 kg

DRUGS (7)
  1. NIASPAN (COATED) [Suspect]
     Indication: ROUTINE HEALTH MAINTENANCE
  2. FISH OIL [Concomitant]
     Indication: PRODUCT USED FOR UNKNOWN INDICATION
  3. CAYENNE PEPPER PILL [Concomitant]
     Indication: PRODUCT USED FOR UNKNOWN INDICATION
  4. ASA [Concomitant]
     Indication: PRODUCT USED FOR UNKNOWN INDICATION
  5. ASTAXANTHIN [Concomitant]
     Indication: PRODUCT USED FOR UNKNOWN INDICATION
  6. UNKNOWN BLOOD PRESSURE MEDICATION [Concomitant]
     Indication: PRODUCT USED FOR UNKNOWN INDICATION
  7. CINNAMON WITH HONEY AND TEA COMBINATION [Concomitant]
     Indication: BLOOD CHOLESTEROL

REACTIONS (1)
  - Flushing [Unknown]
